FAERS Safety Report 10016866 (Version 2)
Quarter: 2014Q2

REPORT INFORMATION
  Report Type: Report from Study
  Country: FR (occurrence: FR)
  Receive Date: 20140318
  Receipt Date: 20140604
  Transmission Date: 20141212
  Serious: Yes (Other)
  Sender: FDA-Public Use
  Company Number: FR-ACTELION-A-CH2014-95938

PATIENT
  Age: 13 Year
  Sex: Male
  Weight: 46 kg

DRUGS (6)
  1. ZAVESCA [Suspect]
     Indication: NIEMANN-PICK DISEASE
     Dosage: 200 MG, TID
     Route: 048
  2. ZAVESCA [Suspect]
     Dosage: 100 MG, TID
     Route: 048
     Dates: start: 20100208
  3. ZAVESCA [Suspect]
     Dosage: 300 MG, TID
     Route: 048
     Dates: start: 2011
  4. ZAVESCA [Suspect]
     Dosage: 100 MG, TID
     Route: 048
     Dates: start: 2012
  5. DEPAKINE [Concomitant]
     Dosage: UNK
     Dates: start: 200702
  6. LAMICTAL [Concomitant]
     Dosage: UNK
     Dates: start: 201003

REACTIONS (5)
  - Convulsion [Recovered/Resolved]
  - Generalised tonic-clonic seizure [Recovered/Resolved]
  - Petit mal epilepsy [Recovered/Resolved]
  - Epilepsy [Recovered/Resolved]
  - Viral infection [Recovered/Resolved]
